FAERS Safety Report 15916707 (Version 1)
Quarter: 2019Q1

REPORT INFORMATION
  Report Type: Spontaneous
  Country: DK (occurrence: DK)
  Receive Date: 20190205
  Receipt Date: 20190205
  Transmission Date: 20190417
  Serious: Yes (Other)
  Sender: FDA-Public Use
  Company Number: DK-TEVA-2019-DK-1006542

PATIENT
  Age: 88 Year
  Sex: Female

DRUGS (17)
  1. ALENDRONATE SODIUM TRIHYDRATE [Suspect]
     Active Substance: ALENDRONATE SODIUM
     Route: 048
     Dates: start: 2010, end: 2012
  2. FUROSEMIDE. [Concomitant]
     Active Substance: FUROSEMIDE
     Indication: DIURETIC THERAPY
     Dosage: 80 MILLIGRAM DAILY; STYRKE: 40 MG
     Route: 048
     Dates: start: 20160512
  3. PARACETAMOL [Concomitant]
     Active Substance: ACETAMINOPHEN
     Indication: PAIN
     Dosage: VED BEHOV STYRKE: 665MG
     Route: 048
     Dates: start: 20170717
  4. FORMOTEROL OG BUDESONID [Concomitant]
     Indication: CHRONIC OBSTRUCTIVE PULMONARY DISEASE
     Dosage: 2 DOSAGE FORMS DAILY; STRENGTH: 9 + 320 MICROGRAM/DOSE
     Route: 055
     Dates: start: 20170126
  5. ACETYLSALICYLIC ACID [Concomitant]
     Active Substance: ASPIRIN
     Indication: ANTICOAGULANT THERAPY
     Dosage: 75 MILLIGRAM DAILY; STYRKE: 75 MG
     Route: 048
     Dates: start: 20171122, end: 20181119
  6. MACROGOL [Concomitant]
     Active Substance: POLYETHYLENE GLYCOLS
     Indication: CONSTIPATION
     Dosage: IF REQUIRED
     Route: 048
     Dates: start: 20180705, end: 20181119
  7. TIOTROPIUM [Concomitant]
     Active Substance: TIOTROPIUM
     Indication: CHRONIC OBSTRUCTIVE PULMONARY DISEASE
     Dosage: 2 DOSAGE FORMS DAILY; STYRKE: 2,5MG
     Route: 055
     Dates: start: 20150102
  8. PANTOPRAZOLE SODIUM SESQUIHYDRATE [Concomitant]
     Active Substance: PANTOPRAZOLE SODIUM
     Indication: GASTROOESOPHAGEAL REFLUX DISEASE
     Dosage: 40 MILLIGRAM DAILY; STYRKE: 40 MG
     Route: 048
     Dates: start: 20161220
  9. METOPROLOL. [Concomitant]
     Active Substance: METOPROLOL
     Indication: CARDIAC FAILURE
     Dosage: 50 MILLIGRAM DAILY; STYRKE: 25 MG
     Route: 048
     Dates: start: 20160512
  10. SALBUTAMOL [Concomitant]
     Active Substance: ALBUTEROL
     Indication: ASTHMA
     Dosage: ON DEMAND STRENGTH: 0.2 MG IN DISCUS
     Route: 055
     Dates: start: 20130930
  11. CALCIUM OG D-VITAMIN [Concomitant]
     Indication: OSTEOPOROSIS
     Dosage: 2 DOSAGE FORMS DAILY; STYRKE: 400MG + 19 MIKROGRAM
     Route: 048
     Dates: start: 20120807
  12. ALENDRONATE SODIUM TRIHYDRATE [Suspect]
     Active Substance: ALENDRONATE SODIUM
     Indication: OSTEOPOROSIS
     Dosage: STYRKE: 70 MG
     Route: 048
     Dates: start: 201701, end: 20181119
  13. FORSTEO [Suspect]
     Active Substance: TERIPARATIDE
     Indication: PRODUCT USED FOR UNKNOWN INDICATION
     Dosage: .08 ML DAILY; STYRKE: 20 MIKROG/80 MIKROL
     Route: 065
     Dates: start: 201206, end: 2015
  14. OXYCODONE [Concomitant]
     Active Substance: OXYCODONE
     Indication: PAIN
     Dosage: 20 MILLIGRAM DAILY; STYRKE: 10 MG
     Route: 048
     Dates: start: 20161028
  15. QUININE [Concomitant]
     Active Substance: QUININE
     Indication: MUSCLE SPASMS
     Dosage: 100 MILLIGRAM DAILY; STYRKE: 100 MG.
     Route: 048
     Dates: start: 20161115, end: 20181119
  16. VENLAFAXINE [Concomitant]
     Active Substance: VENLAFAXINE HYDROCHLORIDE
     Indication: DEPRESSION
     Dosage: 300 MILLIGRAM DAILY;
     Route: 048
     Dates: start: 20170213
  17. PREGABALIN. [Concomitant]
     Active Substance: PREGABALIN
     Indication: THINKING ABNORMAL
     Dosage: 4 ML DAILY; STYRKE . 20 MG/ML
     Route: 048
     Dates: start: 20170306

REACTIONS (2)
  - Osteonecrosis of jaw [Not Recovered/Not Resolved]
  - Exposed bone in jaw [Not Recovered/Not Resolved]

NARRATIVE: CASE EVENT DATE: 2018
